FAERS Safety Report 13705291 (Version 1)
Quarter: 2017Q2

REPORT INFORMATION
  Report Type: Spontaneous
  Country: US (occurrence: US)
  Receive Date: 20170629
  Receipt Date: 20170629
  Transmission Date: 20170830
  Serious: No
  Sender: FDA-Public Use
  Company Number: None

PATIENT
  Sex: Male

DRUGS (1)
  1. CAPECITABINE 500 MG ACCORD [Suspect]
     Active Substance: CAPECITABINE
     Dosage: 1500 MG QAM AND 2000 MG QPM  BID 14 DAYS ON 7 DAYS OFF  PO
     Route: 048
     Dates: start: 20170516

REACTIONS (4)
  - Skin discolouration [None]
  - Hypoaesthesia [None]
  - Dry skin [None]
  - Tongue discolouration [None]
